FAERS Safety Report 10560808 (Version 1)
Quarter: 2014Q4

REPORT INFORMATION
  Report Type: Spontaneous
  Country: JP (occurrence: JP)
  Receive Date: 20141103
  Receipt Date: 20141103
  Transmission Date: 20150529
  Serious: Yes (Other)
  Sender: FDA-Public Use
  Company Number: JP-BRISTOL-MYERS SQUIBB COMPANY-21530662

PATIENT

DRUGS (1)
  1. KENACORT [Suspect]
     Active Substance: TRIAMCINOLONE

REACTIONS (1)
  - Diabetes mellitus [Unknown]
